FAERS Safety Report 8278301-9 (Version None)
Quarter: 2012Q2

REPORT INFORMATION
  Report Type: 
  Country: None (occurrence: None)
  Receive Date: 20120412
  Receipt Date: 20120229
  Transmission Date: 20120825
  Serious: No
  Sender: FDA-Public Use
  Company Number: US-ASTRAZENECA-2012SE14445

PATIENT
  Age: 60 Year
  Sex: Male

DRUGS (2)
  1. NEXIUM [Suspect]
     Indication: GASTROOESOPHAGEAL REFLUX DISEASE
     Route: 048
  2. PRILOSEC [Suspect]
     Indication: GASTROOESOPHAGEAL REFLUX DISEASE
     Route: 048

REACTIONS (9)
  - FATIGUE [None]
  - HYPOVITAMINOSIS [None]
  - VERTIGO [None]
  - ARRHYTHMIA [None]
  - DISEASE RECURRENCE [None]
  - DRUG DOSE OMISSION [None]
  - GASTRIC DISORDER [None]
  - DRUG INEFFECTIVE [None]
  - COELIAC DISEASE [None]
